FAERS Safety Report 13326055 (Version 1)
Quarter: 2017Q1

REPORT INFORMATION
  Report Type: Spontaneous
  Country: FR (occurrence: FR)
  Receive Date: 20170310
  Receipt Date: 20170310
  Transmission Date: 20170428
  Serious: Yes (Life-Threatening, Hospitalization, Other)
  Sender: FDA-Public Use
  Company Number: FR-BAXTER-2017BAX008848

PATIENT
  Age: 44 Year
  Sex: Female

DRUGS (20)
  1. TAXOTERE [Suspect]
     Active Substance: DOCETAXEL
     Route: 042
     Dates: start: 20131010
  2. TAMOXIFEN [Concomitant]
     Active Substance: TAMOXIFEN
     Indication: BREAST CANCER
     Route: 048
  3. ENDOXAN 1000 MG, POUDRE POUR SOLUTION INJECTABLE [Suspect]
     Active Substance: CYCLOPHOSPHAMIDE
     Route: 042
     Dates: start: 20131128
  4. ENDOXAN 1000 MG, POUDRE POUR SOLUTION INJECTABLE [Suspect]
     Active Substance: CYCLOPHOSPHAMIDE
     Route: 042
     Dates: start: 20140109, end: 20140109
  5. DOXORUBICINE TEVA [Suspect]
     Active Substance: DOXORUBICIN
     Route: 042
     Dates: start: 20140109, end: 20140109
  6. ENDOXAN 1000 MG, POUDRE POUR SOLUTION INJECTABLE [Suspect]
     Active Substance: CYCLOPHOSPHAMIDE
     Indication: BREAST CANCER
     Route: 042
     Dates: start: 20130919
  7. DOXORUBICINE TEVA [Suspect]
     Active Substance: DOXORUBICIN
     Route: 042
     Dates: start: 20131219
  8. TAXOTERE [Suspect]
     Active Substance: DOCETAXEL
     Route: 042
     Dates: start: 20131031
  9. TAXOTERE [Suspect]
     Active Substance: DOCETAXEL
     Route: 042
     Dates: start: 20140109, end: 20140109
  10. ENDOXAN 1000 MG, POUDRE POUR SOLUTION INJECTABLE [Suspect]
     Active Substance: CYCLOPHOSPHAMIDE
     Route: 042
     Dates: start: 20131010
  11. ENDOXAN 1000 MG, POUDRE POUR SOLUTION INJECTABLE [Suspect]
     Active Substance: CYCLOPHOSPHAMIDE
     Route: 042
     Dates: start: 20131031
  12. DOXORUBICINE TEVA [Suspect]
     Active Substance: DOXORUBICIN
     Route: 042
     Dates: start: 20131031
  13. ENDOXAN 1000 MG, POUDRE POUR SOLUTION INJECTABLE [Suspect]
     Active Substance: CYCLOPHOSPHAMIDE
     Route: 042
     Dates: start: 20131219
  14. DOXORUBICINE TEVA [Suspect]
     Active Substance: DOXORUBICIN
     Route: 042
     Dates: start: 20131010
  15. TAXOTERE [Suspect]
     Active Substance: DOCETAXEL
     Route: 042
     Dates: start: 20131128
  16. TAXOTERE [Suspect]
     Active Substance: DOCETAXEL
     Route: 042
     Dates: start: 20131219
  17. DOXORUBICINE TEVA [Suspect]
     Active Substance: DOXORUBICIN
     Route: 042
     Dates: start: 20131128
  18. TAXOTERE [Suspect]
     Active Substance: DOCETAXEL
     Indication: BREAST CANCER
     Route: 042
     Dates: start: 20130919
  19. ADRENALINE [Suspect]
     Active Substance: EPINEPHRINE
     Indication: ADVERSE EVENT
     Route: 042
     Dates: start: 20140601
  20. DOXORUBICINE TEVA [Suspect]
     Active Substance: DOXORUBICIN
     Indication: BREAST CANCER
     Route: 042
     Dates: start: 20130919

REACTIONS (6)
  - Ventricular fibrillation [Recovered/Resolved with Sequelae]
  - Congestive cardiomyopathy [Recovered/Resolved with Sequelae]
  - Myoclonus [Unknown]
  - Atrial fibrillation [Unknown]
  - Cardio-respiratory arrest [Recovered/Resolved]
  - Muscle tightness [Unknown]

NARRATIVE: CASE EVENT DATE: 20140601
